FAERS Safety Report 22890638 (Version 2)
Quarter: 2023Q4

REPORT INFORMATION
  Report Type: Report from Study
  Country: RO (occurrence: RO)
  Receive Date: 20230901
  Receipt Date: 20231016
  Transmission Date: 20240110
  Serious: Yes (Death, Hospitalization, Disabling)
  Sender: FDA-Public Use
  Company Number: RO-ABBVIE-5388986

PATIENT
  Age: 72 Year
  Sex: Female

DRUGS (2)
  1. CARBIDOPA\LEVODOPA [Suspect]
     Active Substance: CARBIDOPA\LEVODOPA
     Indication: Parkinson^s disease
     Dosage: DM=4.00 DC=2.50 ED=1.50 NRED=0; DMN=0.00 DCN=2.20 EDN=2.20 NREDN=0
     Route: 050
     Dates: start: 20210730, end: 20231013
  2. CARBIDOPA\LEVODOPA [Suspect]
     Active Substance: CARBIDOPA\LEVODOPA

REACTIONS (3)
  - Cardio-respiratory arrest [Fatal]
  - Femoral neck fracture [Not Recovered/Not Resolved]
  - Fall [Unknown]

NARRATIVE: CASE EVENT DATE: 20230829
